FAERS Safety Report 13946957 (Version 2)
Quarter: 2017Q3

REPORT INFORMATION
  Report Type: Spontaneous
  Country: IL (occurrence: IL)
  Receive Date: 20170907
  Receipt Date: 20170913
  Transmission Date: 20171128
  Serious: Yes (Hospitalization)
  Sender: FDA-Public Use
  Company Number: IL-LUNDBECK-DKLU2036636

PATIENT
  Age: 5 Year
  Sex: Male

DRUGS (6)
  1. CANNABIS [Suspect]
     Active Substance: CANNABIS SATIVA SUBSP. INDICA TOP
     Indication: EPILEPSY
     Route: 065
  2. FRISIUM [Suspect]
     Active Substance: CLOBAZAM
     Indication: EPILEPSY
     Route: 048
  3. LUMINAL [Suspect]
     Active Substance: PHENOBARBITAL SODIUM
     Indication: EPILEPSY
     Route: 065
     Dates: start: 20170820, end: 20170820
  4. FELBAMATE. [Suspect]
     Active Substance: FELBAMATE
     Indication: EPILEPSY
     Route: 065
  5. LUMINAL [Suspect]
     Active Substance: PHENOBARBITAL SODIUM
     Route: 065
     Dates: start: 20170822, end: 20170822
  6. LUMINAL [Suspect]
     Active Substance: PHENOBARBITAL SODIUM
     Route: 065
     Dates: start: 20170821, end: 20170821

REACTIONS (5)
  - Seizure [Unknown]
  - Somnolence [Unknown]
  - Urinary retention [Unknown]
  - Hypotonia [Unknown]
  - Intentional product misuse [Unknown]

NARRATIVE: CASE EVENT DATE: 20170805
